FAERS Safety Report 14160548 (Version 1)
Quarter: 2017Q4

REPORT INFORMATION
  Report Type: Spontaneous
  Country: US (occurrence: US)
  Receive Date: 20171104
  Receipt Date: 20171104
  Transmission Date: 20180321
  Serious: No
  Sender: FDA-Public Use
  Company Number: US-SHIRE-US201725858

PATIENT
  Sex: Female
  Weight: 71.66 kg

DRUGS (1)
  1. GATTEX [Suspect]
     Active Substance: TEDUGLUTIDE\WATER
     Indication: MALABSORPTION
     Dosage: 0.36 ML,DAILY
     Route: 058
     Dates: start: 20170829

REACTIONS (2)
  - Faeces hard [Unknown]
  - Constipation [Unknown]
